FAERS Safety Report 25101032 (Version 2)
Quarter: 2025Q2

REPORT INFORMATION
  Report Type: Spontaneous
  Country: CA (occurrence: CA)
  Receive Date: 20250320
  Receipt Date: 20250505
  Transmission Date: 20250716
  Serious: Yes (Other)
  Sender: TAKEDA
  Company Number: CA-TAKEDA-2025TUS027081

PATIENT
  Age: 63 Year
  Sex: Male
  Weight: 77 kg

DRUGS (8)
  1. GAMMAGARD LIQUID [Suspect]
     Active Substance: HUMAN IMMUNOGLOBULIN G
     Indication: Secondary immunodeficiency
  2. GAMMAGARD LIQUID [Suspect]
     Active Substance: HUMAN IMMUNOGLOBULIN G
     Indication: Chronic lymphocytic leukaemia
     Dates: start: 20250306, end: 20250306
  3. GAMMAGARD LIQUID [Suspect]
     Active Substance: HUMAN IMMUNOGLOBULIN G
     Indication: Infection
  4. GAMMAGARD LIQUID [Suspect]
     Active Substance: HUMAN IMMUNOGLOBULIN G
     Indication: Immunochemotherapy
  5. VENCLEXTA [Concomitant]
     Active Substance: VENETOCLAX
     Indication: Product used for unknown indication
  6. APIXABAN [Concomitant]
     Active Substance: APIXABAN
     Indication: Product used for unknown indication
  7. VITAMIN D NOS [Concomitant]
     Active Substance: CHOLECALCIFEROL\ERGOCALCIFEROL
     Indication: Product used for unknown indication
  8. VITAMIN C [Concomitant]
     Active Substance: ASCORBIC ACID
     Indication: Product used for unknown indication

REACTIONS (9)
  - Chills [Recovered/Resolved]
  - Hypotension [Recovered/Resolved]
  - Nausea [Recovered/Resolved]
  - Dizziness [Recovered/Resolved]
  - Hypogammaglobulinaemia [Unknown]
  - Hypoxia [Unknown]
  - Product use in unapproved indication [Unknown]
  - Respiratory disorder [Unknown]
  - Vomiting [Unknown]

NARRATIVE: CASE EVENT DATE: 20250306
